FAERS Safety Report 8169478-4 (Version None)
Quarter: 2012Q1

REPORT INFORMATION
  Report Type: 
  Country: None (occurrence: None)
  Receive Date: 20120228
  Receipt Date: 20120216
  Transmission Date: 20120608
  Serious: Yes (Hospitalization)
  Sender: FDA-Public Use
  Company Number: US-JNJFOC-20120209164

PATIENT
  Age: 12 Year
  Sex: Female
  Weight: 13.15 kg

DRUGS (8)
  1. ZANTAC [Concomitant]
     Route: 065
  2. PAIN MEDICATION [Concomitant]
     Route: 065
  3. REMICADE [Suspect]
     Indication: COLITIS ULCERATIVE
     Route: 042
     Dates: start: 20110801
  4. SYNTHROID [Concomitant]
     Route: 065
  5. CLARITIN [Concomitant]
     Route: 065
  6. VITAMIN D [Concomitant]
     Route: 065
  7. M.V.I. [Concomitant]
     Route: 065
  8. CALCIUM [Concomitant]
     Route: 065

REACTIONS (2)
  - PHARYNGEAL LESION [None]
  - PALATAL DISORDER [None]
